FAERS Safety Report 8717509 (Version 2)
Quarter: 2012Q4

REPORT INFORMATION
  Report Type: 
  Country: DE (occurrence: DE)
  Receive Date: 20120810
  Receipt Date: 20120905
  Transmission Date: 20130627
  Serious: Yes (Hospitalization)
  Sender: FDA-Public Use
  Company Number: DE-ASTRAZENECA-2012SE51760

PATIENT
  Sex: Female

DRUGS (2)
  1. ZOLADEX [Suspect]
     Indication: BREAST CANCER FEMALE
     Route: 058
  2. TAMOXYFEN [Concomitant]
     Indication: BREAST CANCER FEMALE

REACTIONS (2)
  - Urethritis [Unknown]
  - Cystitis [Unknown]
